FAERS Safety Report 4803249-9 (Version None)
Quarter: 2005Q4

REPORT INFORMATION
  Report Type: 
  Country: None (occurrence: None)
  Receive Date: 20051013
  Receipt Date: 20051005
  Transmission Date: 20060501
  Serious: Yes (Other)
  Sender: FDA-Public Use
  Company Number: 2005138694

PATIENT
  Age: 79 Year
  Sex: Male

DRUGS (1)
  1. NEURONTIN [Suspect]
     Indication: POST HERPETIC NEURALGIA
     Dosage: 900 MG (300 MG, 3 IN 1 D)
     Dates: start: 20050916, end: 20050928

REACTIONS (3)
  - CREATININE RENAL CLEARANCE DECREASED [None]
  - DIALYSIS [None]
  - POST HERPETIC NEURALGIA [None]
